FAERS Safety Report 6817507-X (Version None)
Quarter: 2010Q3

REPORT INFORMATION
  Report Type: 
  Country: None (occurrence: None)
  Receive Date: 20100706
  Receipt Date: 20100624
  Transmission Date: 20110219
  Serious: Yes (Other)
  Sender: FDA-Public Use
  Company Number: B0662646A

PATIENT
  Sex: Male

DRUGS (1)
  1. SERETIDE DISKUS [Suspect]
     Indication: ASTHMA
     Dosage: 1PUFF TWICE PER DAY
     Route: 055

REACTIONS (4)
  - ATROPHIC GLOSSITIS [None]
  - GLOSSITIS [None]
  - GLOSSODYNIA [None]
  - TONGUE DISORDER [None]
